FAERS Safety Report 6370792-3 (Version None)
Quarter: 2009Q3

REPORT INFORMATION
  Report Type: 
  Country: None (occurrence: None)
  Receive Date: 20090923
  Receipt Date: 20070720
  Transmission Date: 20100115
  Serious: Yes (Other)
  Sender: FDA-Public Use
  Company Number: US-ASTRAZENECA-2006UW24029

PATIENT
  Age: 15856 Day
  Sex: Female

DRUGS (8)
  1. SEROQUEL [Suspect]
     Indication: DEPRESSION
     Route: 048
  2. SEROQUEL [Suspect]
     Indication: PANIC DISORDER
     Route: 048
  3. SEROQUEL [Suspect]
     Dosage: 100-300 MG
     Route: 048
     Dates: start: 20040331
  4. SEROQUEL [Suspect]
     Dosage: 100-300 MG
     Route: 048
     Dates: start: 20040331
  5. ZYPREXA [Suspect]
     Dosage: 5 MG BID, 10 MG HS
     Dates: start: 20020926
  6. HALDOL [Concomitant]
  7. LEXAPRO [Concomitant]
  8. KLONOPIN [Concomitant]

REACTIONS (1)
  - PANCREATITIS [None]
